FAERS Safety Report 6150794-2 (Version None)
Quarter: 2009Q2

REPORT INFORMATION
  Report Type: 
  Country: None (occurrence: None)
  Receive Date: 20090408
  Receipt Date: 20090325
  Transmission Date: 20091009
  Serious: Yes (Hospitalization)
  Sender: FDA-Public Use
  Company Number: 1000005611

PATIENT
  Age: 48 Year
  Sex: Female

DRUGS (13)
  1. LEXAPRO [Suspect]
     Dosage: 20 MG (20 MG,1 IN 1 D)
  2. BLINDED THERAPY FOR DESVENLAFAXINE SUCCINATE MONOHYDRATE (TABLETS) [Suspect]
     Indication: MENOPAUSAL SYMPTOMS
     Dosage: (DAILY),ORAL
     Route: 048
     Dates: start: 20080909, end: 20081224
  3. IBUPROFEN [Suspect]
     Dosage: 2400 MG (800 MG,3 IN 1 D)
  4. LYRICA [Suspect]
     Dosage: 75 MG (75 MG,1 IN 1 D)
  5. CLONAZEPAM [Suspect]
     Dosage: 2 MG (1 MG,2 IN 1 D)
  6. ABILIFY [Suspect]
     Dosage: 30 MG (15 MG,2 IN 1 D)
  7. FLUTICASONE [Suspect]
     Dosage: (2 SPRAYS DAILY)
  8. LORATADINE [Suspect]
     Dosage: 10 MG (10 MG,1 IN 1 D)
  9. VICODIN [Suspect]
     Dosage: (PRN)
  10. ZESTORETIC [Suspect]
     Dosage: (DAILY)
  11. AMBIEN [Suspect]
     Dosage: 10 MG (10 MG,1 IN 1 D)
  12. VIVELLE [Suspect]
     Dosage: (0.1 MG),TRANSDERMAL
     Route: 062
  13. ROBAXIN [Suspect]
     Dosage: 2250 MG (750 MG,3 IN 1 D)

REACTIONS (12)
  - ASTHENIA [None]
  - BLOOD POTASSIUM DECREASED [None]
  - CONFUSIONAL STATE [None]
  - DYSARTHRIA [None]
  - ELECTROCARDIOGRAM ST SEGMENT ABNORMAL [None]
  - HAEMATOCRIT INCREASED [None]
  - HEADACHE [None]
  - HYPERTENSION [None]
  - HYPOKALAEMIA [None]
  - MASTOID DISORDER [None]
  - MENTAL STATUS CHANGES [None]
  - WHITE BLOOD CELL COUNT INCREASED [None]
